FAERS Safety Report 12817085 (Version 1)
Quarter: 2016Q4

REPORT INFORMATION
  Report Type: Spontaneous
  Country: US (occurrence: US)
  Receive Date: 20161005
  Receipt Date: 20161005
  Transmission Date: 20170207
  Serious: Yes (Disabling)
  Sender: FDA-Public Use
  Company Number: None

PATIENT
  Age: 56 Year
  Sex: Male
  Weight: 150.3 kg

DRUGS (8)
  1. ASPIRIN. [Concomitant]
     Active Substance: ASPIRIN
  2. SYSTANE (HYPROMELLOSE 2910 (4000 MPA.S)) [Concomitant]
     Active Substance: HYPROMELLOSE 2910 (4000 MPA.S)
  3. LOSARTIN [Concomitant]
     Active Substance: LOSARTAN
  4. FLUOXETINE [Suspect]
     Active Substance: FLUOXETINE HYDROCHLORIDE
     Indication: MAJOR DEPRESSION
     Dosage: ?          QUANTITY:1 CAPSULE(S);?
     Route: 048
     Dates: start: 20121012, end: 20160617
  5. FLUOXETINE [Suspect]
     Active Substance: FLUOXETINE HYDROCHLORIDE
     Indication: PERSONALITY DISORDER
     Dosage: ?          QUANTITY:1 CAPSULE(S);?
     Route: 048
     Dates: start: 20121012, end: 20160617
  6. LAMOTRIGINE. [Suspect]
     Active Substance: LAMOTRIGINE
     Indication: PERSONALITY DISORDER
     Dosage: ?          QUANTITY:2 CAPSULE(S);?
     Route: 048
     Dates: start: 20121012, end: 20160617
  7. LAMOTRIGINE. [Suspect]
     Active Substance: LAMOTRIGINE
     Indication: MAJOR DEPRESSION
     Dosage: ?          QUANTITY:2 CAPSULE(S);?
     Route: 048
     Dates: start: 20121012, end: 20160617
  8. VITAMIN D 3 [Concomitant]

REACTIONS (6)
  - Infection [None]
  - Psychomotor retardation [None]
  - Cognitive disorder [None]
  - Groin infection [None]
  - Balance disorder [None]
  - Gait disturbance [None]

NARRATIVE: CASE EVENT DATE: 20160206
